FAERS Safety Report 5030261-X (Version None)
Quarter: 2006Q2

REPORT INFORMATION
  Report Type: 
  Country: None (occurrence: None)
  Receive Date: 20060615
  Receipt Date: 20060511
  Transmission Date: 20061013
  Serious: Yes (Hospitalization)
  Sender: FDA-Public Use
  Company Number: 2006BH010691

PATIENT

DRUGS (1)
  1. SODIUM CHLORIDE 0.9% [Suspect]
     Indication: WOUND TREATMENT
     Dosage: TOP
     Route: 061

REACTIONS (2)
  - IMPAIRED HEALING [None]
  - POOR QUALITY DRUG ADMINISTERED [None]
